FAERS Safety Report 5741367-1 (Version None)
Quarter: 2008Q2

REPORT INFORMATION
  Report Type: 
  Country: None (occurrence: None)
  Receive Date: 20080514
  Receipt Date: 20080430
  Transmission Date: 20081010
  Serious: Yes (Hospitalization)
  Sender: FDA-Public Use
  Company Number: MEDI-0006805

PATIENT
  Age: 11 Month
  Sex: Female
  Weight: 4.58 kg

DRUGS (5)
  1. SYNAGIS [Suspect]
     Indication: RESPIRATORY SYNCYTIAL VIRUS INFECTION
     Dosage: SEE IMAGE
     Route: 058
     Dates: start: 20071011, end: 20080201
  2. SYNAGIS [Suspect]
     Indication: RESPIRATORY SYNCYTIAL VIRUS INFECTION
     Dosage: SEE IMAGE
     Route: 058
     Dates: start: 20071011
  3. SYNAGIS [Suspect]
     Indication: RESPIRATORY SYNCYTIAL VIRUS INFECTION
     Dosage: SEE IMAGE
     Route: 058
     Dates: start: 20071114
  4. SYNAGIS [Suspect]
     Indication: RESPIRATORY SYNCYTIAL VIRUS INFECTION
     Dosage: SEE IMAGE
     Route: 058
     Dates: start: 20071212
  5. SYNAGIS [Suspect]
     Indication: RESPIRATORY SYNCYTIAL VIRUS INFECTION
     Dosage: SEE IMAGE
     Route: 058
     Dates: start: 20080109

REACTIONS (5)
  - CYANOSIS [None]
  - DYSPEPSIA [None]
  - OBSTRUCTIVE AIRWAYS DISORDER [None]
  - RESPIRATORY SYNCYTIAL VIRUS INFECTION [None]
  - ROTAVIRUS INFECTION [None]
